FAERS Safety Report 5828421-0 (Version None)
Quarter: 2008Q3

REPORT INFORMATION
  Report Type: 
  Country: None (occurrence: None)
  Receive Date: 20080729
  Receipt Date: 20080729
  Transmission Date: 20090109
  Serious: No
  Sender: FDA-Public Use
  Company Number: None

PATIENT
  Age: 9 Year
  Sex: Male
  Weight: 26.7622 kg

DRUGS (3)
  1. RISPERIDONE [Suspect]
     Indication: AFFECTIVE DISORDER
     Dosage: 0.5MG AM PO
     Route: 048
     Dates: start: 20080722, end: 20080723
  2. RISPERIDONE [Suspect]
     Indication: AFFECTIVE DISORDER
     Dosage: 0.25 HS PO
     Route: 048
     Dates: start: 20080722, end: 20080723
  3. FLUOXETINE [Concomitant]

REACTIONS (3)
  - DRY MOUTH [None]
  - GAIT DISTURBANCE [None]
  - MUSCLE TIGHTNESS [None]
